FAERS Safety Report 8098373-4 (Version None)
Quarter: 2012Q1

REPORT INFORMATION
  Report Type: 
  Country: None (occurrence: None)
  Receive Date: 20120131
  Receipt Date: 20120123
  Transmission Date: 20120608
  Serious: Yes (Hospitalization)
  Sender: FDA-Public Use
  Company Number: US-US-EMD SERONO, INC.-7106590

PATIENT
  Sex: Female
  Weight: 96 kg

DRUGS (6)
  1. VIACTIV [Concomitant]
     Route: 048
  2. OXYBUTYNIN [Concomitant]
     Indication: BLADDER DISORDER
     Route: 048
  3. VITAMIN D [Concomitant]
  4. REBIF [Suspect]
     Indication: MULTIPLE SCLEROSIS
     Route: 058
     Dates: start: 20111101
  5. NAPROXEN (ALEVE) [Concomitant]
     Indication: PREMEDICATION
     Route: 048
  6. MULTI-VITAMIN [Concomitant]
     Route: 048

REACTIONS (1)
  - OPTIC NEURITIS [None]
